FAERS Safety Report 5611463-8 (Version None)
Quarter: 2008Q1

REPORT INFORMATION
  Report Type: 
  Country: None (occurrence: None)
  Receive Date: 20080201
  Receipt Date: 20080123
  Transmission Date: 20080703
  Serious: Yes (Other)
  Sender: FDA-Public Use
  Company Number: NL-PFIZER INC-2008009393

PATIENT
  Sex: Female

DRUGS (1)
  1. LIPITOR [Suspect]
     Route: 048

REACTIONS (4)
  - LIP SWELLING [None]
  - LOCAL SWELLING [None]
  - PHARYNGEAL OEDEMA [None]
  - SWOLLEN TONGUE [None]
